FAERS Safety Report 21334268 (Version 1)
Quarter: 2022Q3

REPORT INFORMATION
  Report Type: Spontaneous
  Country: US (occurrence: US)
  Receive Date: 20220914
  Receipt Date: 20220914
  Transmission Date: 20221027
  Serious: No
  Sender: FDA-Public Use
  Company Number: US-009507513-2209USA000930

PATIENT
  Age: 2 Month
  Sex: Male

DRUGS (1)
  1. ISENTRESS [Suspect]
     Active Substance: RALTEGRAVIR POTASSIUM
     Dosage: 100 MILLIGRAM
     Route: 048

REACTIONS (3)
  - Product communication issue [Unknown]
  - Product preparation issue [Unknown]
  - No adverse event [Unknown]
